FAERS Safety Report 6533826-9 (Version None)
Quarter: 2010Q1

REPORT INFORMATION
  Report Type: 
  Country: None (occurrence: None)
  Receive Date: 20100111
  Receipt Date: 20091230
  Transmission Date: 20100710
  Serious: No
  Sender: FDA-Public Use
  Company Number: US-ABBOTT-10P-163-0617700-00

PATIENT
  Sex: Male

DRUGS (1)
  1. VICODIN [Suspect]
     Indication: BACK PAIN
     Dates: start: 20010101, end: 20010101

REACTIONS (1)
  - CONSTIPATION [None]
